FAERS Safety Report 13776823 (Version 2)
Quarter: 2017Q3

REPORT INFORMATION
  Report Type: Spontaneous
  Country: DE (occurrence: DE)
  Receive Date: 20170720
  Receipt Date: 20170906
  Transmission Date: 20171127
  Serious: Yes (Death)
  Sender: FDA-Public Use
  Company Number: GXKR2017DE003703

PATIENT
  Sex: Male
  Weight: 80 kg

DRUGS (2)
  1. CLOZAPINE. [Suspect]
     Active Substance: CLOZAPINE
     Dosage: UP TO 250 MG PER DAY
     Route: 048
  2. CLOZAPINE. [Suspect]
     Active Substance: CLOZAPINE
     Indication: SCHIZOPHRENIA
     Dosage: 100 MG, QD
     Route: 048

REACTIONS (8)
  - Shock [Fatal]
  - Ileus paralytic [Fatal]
  - Vomiting [Fatal]
  - Circulatory collapse [Fatal]
  - Megacolon [Fatal]
  - Nausea [Fatal]
  - Abdominal pain upper [Fatal]
  - Restlessness [Unknown]
